FAERS Safety Report 15834809 (Version 6)
Quarter: 2019Q2

REPORT INFORMATION
  Report Type: Report from Study
  Country: DE (occurrence: DE)
  Receive Date: 20190116
  Receipt Date: 20190502
  Transmission Date: 20190711
  Serious: Yes (Other)
  Sender: FDA-Public Use
  Company Number: PHHY2019DE006726

PATIENT
  Sex: Female
  Weight: 51 kg

DRUGS (3)
  1. LETROZOLE 1A PHARMA [Suspect]
     Active Substance: LETROZOLE
     Indication: BREAST CANCER
     Dosage: 2.5 MG, QD
     Route: 048
     Dates: start: 20180903
  2. KISQALI [Suspect]
     Active Substance: RIBOCICLIB
     Dosage: 800 MG (2 X 400 MG), (SCHEME 21 DAYS 7 DAYS PAUSE IN THE MORNING (2-0-0))
     Route: 048
     Dates: start: 20190404, end: 20190418
  3. KISQALI [Suspect]
     Active Substance: RIBOCICLIB
     Indication: BREAST CANCER METASTATIC
     Dosage: 600 MG, QD (3-0-0, 21/7)
     Route: 048
     Dates: start: 20181001, end: 20190326

REACTIONS (4)
  - Neutropenia [Recovered/Resolved]
  - Leukopenia [Recovering/Resolving]
  - Neutropenia [Recovering/Resolving]
  - Leukopenia [Recovered/Resolved]

NARRATIVE: CASE EVENT DATE: 20181025
